FAERS Safety Report 26053214 (Version 2)
Quarter: 2025Q4

REPORT INFORMATION
  Report Type: Spontaneous
  Country: US (occurrence: US)
  Receive Date: 20251117
  Receipt Date: 20251118
  Transmission Date: 20260117
  Serious: Yes (Death, Other)
  Sender: PROCTER AND GAMBLE
  Company Number: US-PROCTER+GAMBLE-PH25019200

PATIENT
  Sex: Female

DRUGS (1)
  1. PEPTO-BISMOL [Suspect]
     Active Substance: BISMUTH SUBSALICYLATE
     Dosage: LIQUID, TOOK IT EVERY DAY OVER A LONG PERIOD OF TIME

REACTIONS (8)
  - Aspiration [Fatal]
  - Oesophageal achalasia [Fatal]
  - Drug abuse [Fatal]
  - Nerve injury [Fatal]
  - Productive cough [Fatal]
  - Abnormal loss of weight [Fatal]
  - General physical health deterioration [Fatal]
  - Incorrect product administration duration [Fatal]

NARRATIVE: CASE EVENT DATE: 20250101
